FAERS Safety Report 5413667-6 (Version None)
Quarter: 2007Q3

REPORT INFORMATION
  Report Type: 
  Country: None (occurrence: None)
  Receive Date: 20070814
  Receipt Date: 20070808
  Transmission Date: 20080115
  Serious: Yes (Other)
  Sender: FDA-Public Use
  Company Number: FR-ASTRAZENECA-2007CG01172

PATIENT
  Age: 79 Year
  Sex: Female

DRUGS (5)
  1. SEROQUEL [Suspect]
     Indication: HALLUCINATION, AUDITORY
     Route: 048
  2. COAPROVEL [Concomitant]
  3. ZOLPIDEM TARTRATE [Concomitant]
  4. BROMAZEPAM [Concomitant]
  5. IDEOS [Concomitant]

REACTIONS (3)
  - ANAEMIA MACROCYTIC [None]
  - LEUKOPENIA [None]
  - NEUTROPENIA [None]
